FAERS Safety Report 5006813-X (Version None)
Quarter: 2006Q2

REPORT INFORMATION
  Report Type: 
  Country: None (occurrence: None)
  Receive Date: 20060519
  Receipt Date: 20060509
  Transmission Date: 20061013
  Serious: Yes (Other)
  Sender: FDA-Public Use
  Company Number: PHBS2006PL06868

PATIENT
  Age: 14 Year
  Sex: Male

DRUGS (4)
  1. CYCLOSPORINE [Suspect]
     Indication: BONE MARROW TRANSPLANT
     Route: 065
  2. METHOTREXATE [Concomitant]
     Dosage: SHORT-COURSE
  3. ATGAM [Concomitant]
  4. CYCLOPHOSPHAMIDE [Concomitant]
     Dosage: 200 MG/KG/D

REACTIONS (12)
  - ANTI-THYROID ANTIBODY POSITIVE [None]
  - ANTIBODY TEST POSITIVE [None]
  - BASEDOW'S DISEASE [None]
  - BLOOD THYROID STIMULATING HORMONE DECREASED [None]
  - GOITRE [None]
  - HYPERTHYROIDISM [None]
  - SLEEP DISORDER [None]
  - TACHYCARDIA [None]
  - THYROIDECTOMY [None]
  - THYROXINE FREE INCREASED [None]
  - TRI-IODOTHYRONINE INCREASED [None]
  - WEIGHT DECREASED [None]
